FAERS Safety Report 8430741-0 (Version None)
Quarter: 2012Q2

REPORT INFORMATION
  Report Type: 
  Country: None (occurrence: None)
  Receive Date: 20120612
  Receipt Date: 20120607
  Transmission Date: 20120825
  Serious: Yes (Hospitalization, Other)
  Sender: FDA-Public Use
  Company Number: JP-TEVA-330662USA

PATIENT
  Sex: Female
  Weight: 45 kg

DRUGS (9)
  1. SULFAMETHOXAZOLE AND TRIMETHOPRIM [Suspect]
     Dosage: 2 DF UNKNOWN/D
     Route: 048
     Dates: start: 20120306, end: 20120101
  2. FAMOTIDINE [Suspect]
     Dosage: 20 MILLIGRAM;
     Dates: start: 20110712, end: 20111109
  3. ACYCLOVIR [Suspect]
     Dosage: 200 MILLIGRAM;
     Route: 048
     Dates: start: 20120306, end: 20120101
  4. DEXAMETHASONE [Concomitant]
     Dates: start: 20110712
  5. ACYCLOVIR [Suspect]
     Dosage: 200 MILLIGRAM;
     Route: 048
     Dates: start: 20110712, end: 20111101
  6. SULFAMETHOXAZOLE AND TRIMETHOPRIM [Suspect]
     Dosage: 2 DF UNKNOWN/D
     Route: 048
     Dates: start: 20110712, end: 20110909
  7. GRANISETRON [Concomitant]
  8. TREANDA [Suspect]
     Indication: B-CELL LYMPHOMA
     Dosage: 130 MILLIGRAM;
     Route: 042
     Dates: start: 20120306
  9. FAMOTIDINE [Suspect]
     Dosage: 20 MILLIGRAM;
     Dates: start: 20120306, end: 20120101

REACTIONS (1)
  - STEVENS-JOHNSON SYNDROME [None]
